FAERS Safety Report 17301675 (Version 1)
Quarter: 2020Q1

REPORT INFORMATION
  Report Type: Spontaneous
  Country: US (occurrence: US)
  Receive Date: 20200122
  Receipt Date: 20200122
  Transmission Date: 20200409
  Serious: Yes (Other)
  Sender: FDA-Public Use
  Company Number: US-ENDO PHARMACEUTICALS INC-2019-102688

PATIENT
  Sex: Female
  Weight: 73.02 kg

DRUGS (1)
  1. PERCOCET [Suspect]
     Active Substance: ACETAMINOPHEN\OXYCODONE HYDROCHLORIDE
     Indication: PAIN
     Dosage: 5 MG, FOUR TO SIX TIMES DAILY
     Route: 065

REACTIONS (8)
  - Weight decreased [Unknown]
  - Drug abuse [Unknown]
  - Influenza [Unknown]
  - Malaise [Unknown]
  - Drug ineffective [Unknown]
  - Feeding disorder [Unknown]
  - Drug tolerance increased [Unknown]
  - Drug dependence [Unknown]

NARRATIVE: CASE EVENT DATE: 2017
